FAERS Safety Report 20313285 (Version 3)
Quarter: 2022Q1

REPORT INFORMATION
  Report Type: Spontaneous
  Country: US (occurrence: US)
  Receive Date: 20220110
  Receipt Date: 20220121
  Transmission Date: 20220424
  Serious: No
  Sender: FDA-Public Use
  Company Number: US-TEVA-2021-US-1991587

PATIENT
  Age: 69 Year
  Sex: Female

DRUGS (2)
  1. AJOVY [Suspect]
     Active Substance: FREMANEZUMAB-VFRM
     Indication: Migraine
     Dosage: 225/1.5 MG/ML
     Route: 065
  2. AJOVY [Suspect]
     Active Substance: FREMANEZUMAB-VFRM
     Dosage: 225/1.5 MG/ML
     Route: 065
     Dates: start: 20211212

REACTIONS (4)
  - Stress [Unknown]
  - Device difficult to use [Unknown]
  - Incorrect dose administered [Unknown]
  - Anxiety [Unknown]

NARRATIVE: CASE EVENT DATE: 20211201
